FAERS Safety Report 16315163 (Version 1)
Quarter: 2019Q2

REPORT INFORMATION
  Report Type: Spontaneous
  Country: US (occurrence: US)
  Receive Date: 20190409
  Receipt Date: 20190409
  Transmission Date: 20190711
  Serious: Yes (Hospitalization)
  Sender: FDA-Public Use
  Company Number: None

PATIENT
  Age: 91 Year
  Sex: Male
  Weight: 72 kg

DRUGS (1)
  1. DABIGATRAN [Suspect]
     Active Substance: DABIGATRAN
     Indication: ATRIAL FIBRILLATION
     Route: 048
     Dates: start: 20181107, end: 20181115

REACTIONS (5)
  - Haemothorax [None]
  - Anaemia [None]
  - Mesothelioma [None]
  - Symptom recurrence [None]
  - Malignant pleural effusion [None]

NARRATIVE: CASE EVENT DATE: 20181116
